FAERS Safety Report 13454819 (Version 3)
Quarter: 2017Q2

REPORT INFORMATION
  Report Type: Spontaneous
  Country: US (occurrence: US)
  Receive Date: 20170418
  Receipt Date: 20170525
  Transmission Date: 20170830
  Serious: No
  Sender: FDA-Public Use
  Company Number: US-TEVA-752525ACC

PATIENT
  Sex: Female

DRUGS (1)
  1. PARAGARD T 380A [Suspect]
     Active Substance: COPPER
     Dosage: ABOUT 10 YEARS AGO
     Route: 065

REACTIONS (2)
  - Complication associated with device [Recovered/Resolved]
  - Device breakage [Unknown]

NARRATIVE: CASE EVENT DATE: 20170426
